FAERS Safety Report 10312807 (Version 2)
Quarter: 2014Q3

REPORT INFORMATION
  Report Type: Spontaneous
  Country: CA (occurrence: None)
  Receive Date: 20140716
  Receipt Date: 20140821
  Transmission Date: 20150326
  Serious: Yes (Death, Hospitalization)
  Sender: FDA-Public Use
  Company Number: 2014CA005950

PATIENT
  Sex: Male

DRUGS (1)
  1. ELIGARD [Suspect]
     Active Substance: LEUPROLIDE ACETATE
     Indication: PROSTATE CANCER
     Dates: start: 20140327

REACTIONS (5)
  - Metastases to bone [None]
  - Asthenia [None]
  - Portal vein thrombosis [None]
  - Prostate cancer [None]
  - Disease progression [None]

NARRATIVE: CASE EVENT DATE: 20140708
